FAERS Safety Report 7844675-3 (Version None)
Quarter: 2011Q4

REPORT INFORMATION
  Report Type: 
  Country: None (occurrence: None)
  Receive Date: 20111025
  Receipt Date: 20111018
  Transmission Date: 20120403
  Serious: Yes (Death)
  Sender: FDA-Public Use
  Company Number: FR-JNJFOC-20111009922

PATIENT
  Sex: Female

DRUGS (5)
  1. DOXORUBICIN HCL [Suspect]
     Indication: SARCOMA UTERUS
     Route: 042
  2. MESNA [Suspect]
     Indication: SARCOMA UTERUS
     Route: 065
  3. CISPLATIN [Suspect]
     Indication: SARCOMA UTERUS
     Route: 065
  4. IFOSFAMIDE [Suspect]
     Indication: SARCOMA UTERUS
     Route: 065
  5. LENOGRASTIM [Suspect]
     Indication: SARCOMA UTERUS
     Route: 065

REACTIONS (2)
  - FEBRILE NEUTROPENIA [None]
  - DEATH [None]
